FAERS Safety Report 8530437-0 (Version None)
Quarter: 2012Q3

REPORT INFORMATION
  Report Type: 
  Country: None (occurrence: None)
  Receive Date: 20120723
  Receipt Date: 20120711
  Transmission Date: 20120928
  Serious: Yes (Hospitalization)
  Sender: FDA-Public Use
  Company Number: JP-VERTEX PHARMACEUTICALS INC.-AE-2012-006753

PATIENT
  Age: 59 Year
  Sex: Female

DRUGS (13)
  1. REBETOL [Concomitant]
     Route: 048
     Dates: end: 20120524
  2. PEGINTERFERON ALFA-2B [Concomitant]
     Route: 058
     Dates: start: 20120511
  3. REBETOL [Concomitant]
     Indication: HEPATITIS C
     Route: 048
     Dates: start: 20120406, end: 20120425
  4. REBETOL [Concomitant]
     Route: 048
     Dates: start: 20120522, end: 20120523
  5. REBETOL [Concomitant]
     Route: 048
     Dates: start: 20120614
  6. PEGINTERFERON ALFA-2B [Concomitant]
     Route: 058
     Dates: start: 20120606
  7. TELAVIC (TELAPREVIR) [Suspect]
     Indication: HEPATITIS C
     Route: 048
     Dates: start: 20120406, end: 20120514
  8. TELAVIC (TELAPREVIR) [Suspect]
     Route: 048
     Dates: start: 20120522, end: 20120524
  9. TELAVIC (TELAPREVIR) [Suspect]
     Route: 048
     Dates: start: 20120515, end: 20120521
  10. PEGINTERFERON ALFA-2B [Concomitant]
     Route: 058
     Dates: end: 20120518
  11. OLMESARTAN MEDOXOMIL [Concomitant]
     Route: 048
  12. REBETOL [Concomitant]
     Route: 048
     Dates: start: 20120426, end: 20120507
  13. PEGINTERFERON ALFA-2B [Concomitant]
     Indication: HEPATITIS C
     Route: 058
     Dates: start: 20120406, end: 20120502

REACTIONS (1)
  - MALAISE [None]
